FAERS Safety Report 5315827-1 (Version None)
Quarter: 2007Q2

REPORT INFORMATION
  Report Type: 
  Country: None (occurrence: None)
  Receive Date: 20070503
  Receipt Date: 20070502
  Transmission Date: 20071010
  Serious: Yes (Other)
  Sender: FDA-Public Use
  Company Number: DE-GLAXOSMITHKLINE-D0052461A

PATIENT
  Age: 47 Year
  Sex: Female

DRUGS (3)
  1. SEROXAT [Suspect]
     Dosage: 20MG SEE DOSAGE TEXT
     Route: 048
  2. PROMETHAZINE [Suspect]
     Route: 048
  3. AMITRIPTYLINE HCL [Suspect]
     Route: 048

REACTIONS (4)
  - AGITATION [None]
  - RHABDOMYOLYSIS [None]
  - SOMNOLENCE [None]
  - SUICIDE ATTEMPT [None]
